FAERS Safety Report 7277905-X (Version None)
Quarter: 2011Q1

REPORT INFORMATION
  Report Type: 
  Country: None (occurrence: None)
  Receive Date: 20110113
  Receipt Date: 20110113
  Transmission Date: 20110831
  Serious: Yes (Hospitalization)
  Sender: FDA-Public Use
  Company Number: None

PATIENT
  Age: 9 Year
  Sex: Male
  Weight: 27.2158 kg

DRUGS (1)
  1. TRIAD PREP KIT TRIAC CARDINAL [Suspect]
     Dosage: WEEKLY
     Dates: start: 20100515, end: 20101225

REACTIONS (2)
  - STAPHYLOCOCCAL INFECTION [None]
  - INFUSION SITE INFECTION [None]
